FAERS Safety Report 6171148-9 (Version None)
Quarter: 2009Q2

REPORT INFORMATION
  Report Type: 
  Country: None (occurrence: None)
  Receive Date: 20090428
  Receipt Date: 20090428
  Transmission Date: 20091009
  Serious: Yes (Other)
  Sender: FDA-Public Use
  Company Number: None

PATIENT
  Sex: Female
  Weight: 62.5964 kg

DRUGS (1)
  1. LEVAQUIN [Suspect]
     Indication: SINUSITIS
     Dosage: 500 MG. ONCE PER DAY PO
     Route: 048
     Dates: start: 20090403, end: 20090412

REACTIONS (12)
  - ABDOMINAL PAIN LOWER [None]
  - ARTHRALGIA [None]
  - BACK PAIN [None]
  - GROIN PAIN [None]
  - HEADACHE [None]
  - HYPERHIDROSIS [None]
  - INSOMNIA [None]
  - JOINT SWELLING [None]
  - MUSCULOSKELETAL PAIN [None]
  - MUSCULOSKELETAL STIFFNESS [None]
  - NECK PAIN [None]
  - NIGHT SWEATS [None]
